FAERS Safety Report 17396905 (Version 3)
Quarter: 2020Q1

REPORT INFORMATION
  Report Type: Spontaneous
  Country: US (occurrence: US)
  Receive Date: 20200210
  Receipt Date: 20200219
  Transmission Date: 20200409
  Serious: Yes (Other)
  Sender: FDA-Public Use
  Company Number: US-PFIZER INC-2020057740

PATIENT
  Sex: Female

DRUGS (1)
  1. ADVIL LIQUI-GELS [Suspect]
     Active Substance: IBUPROFEN
     Dosage: UNK

REACTIONS (6)
  - Dizziness [Unknown]
  - Multiple fractures [Unknown]
  - Amnesia [Unknown]
  - Road traffic accident [Unknown]
  - Dyspepsia [Unknown]
  - Brain injury [Unknown]

NARRATIVE: CASE EVENT DATE: 2008
